FAERS Safety Report 14171953 (Version 1)
Quarter: 2017Q4

REPORT INFORMATION
  Report Type: Report from Study
  Country: IL (occurrence: IL)
  Receive Date: 20171108
  Receipt Date: 20171108
  Transmission Date: 20180321
  Serious: Yes (Hospitalization)
  Sender: FDA-Public Use
  Company Number: IL-MYLANLABS-2017M1069657

PATIENT
  Age: 25 Year
  Sex: Male

DRUGS (4)
  1. CLOBAZAM [Interacting]
     Active Substance: CLOBAZAM
     Indication: EPILEPSY
     Dosage: 35 MG/DAY
     Route: 065
  2. VALPROIC ACID. [Interacting]
     Active Substance: VALPROIC ACID
     Indication: EPILEPSY
     Dosage: 2500 MG
     Route: 065
  3. TOPIRAMATE. [Interacting]
     Active Substance: TOPIRAMATE
     Indication: EPILEPSY
     Dosage: 200 MG/DAY
     Route: 065
  4. CARBAMAZEPINE. [Suspect]
     Active Substance: CARBAMAZEPINE
     Indication: EPILEPSY
     Dosage: 1600 MG/DAY
     Route: 065

REACTIONS (2)
  - Hyperammonaemia [Recovered/Resolved]
  - Drug interaction [Recovered/Resolved]
